FAERS Safety Report 7628945 (Version 2)
Quarter: 2013Q1

REPORT INFORMATION
  Report Type: Spontaneous
  Country: JP (occurrence: JP)
  Receive Date: 20101014
  Receipt Date: 20130308
  Transmission Date: 20140127
  Serious: Yes (Hospitalization)
  Sender: FDA-Public Use
  Company Number: JP-NOVOPROD-304513

PATIENT
  Age: 72 Year
  Sex: Male
  Weight: 53 kg

DRUGS (7)
  1. NOVORAPID [Suspect]
     Indication: TYPE 2 DIABETES MELLITUS
     Dosage: 6 U, TID
     Dates: start: 2006, end: 200807
  2. LEVEMIR [Suspect]
     Indication: TYPE 2 DIABETES MELLITUS
     Dosage: UNK
     Dates: start: 200807
  3. ISOPHANE INSULIN [Suspect]
  4. MIGLITOL [Concomitant]
     Dosage: 150 MG, QD
     Route: 048
  5. HUMALOG                            /00030501/ [Concomitant]
     Dosage: 40 U, QD
     Route: 058
  6. PIOGLITAZONE                       /01460202/ [Concomitant]
     Dosage: 15 MG, QD
  7. INSULIN LISPRO [Concomitant]

REACTIONS (6)
  - Anti-insulin antibody increased [Unknown]
  - Diabetes mellitus inadequate control [Unknown]
  - Hyperglycaemia [Unknown]
  - Hypoglycaemia [Unknown]
  - Injection site pruritus [Unknown]
  - Injection site erythema [Unknown]
